FAERS Safety Report 8595640-2 (Version None)
Quarter: 2012Q3

REPORT INFORMATION
  Report Type: 
  Country: None (occurrence: None)
  Receive Date: 20120815
  Receipt Date: 20120808
  Transmission Date: 20120928
  Serious: Yes (Other)
  Sender: FDA-Public Use
  Company Number: AT-TEVA-352603ISR

PATIENT
  Age: 32 Year
  Sex: Female
  Weight: 57 kg

DRUGS (1)
  1. AZITHROMYCIN [Suspect]
     Indication: BACTERIAL INFECTION
     Dosage: 500 MILLIGRAM DAILY; 500 MG PER DAY (1X1)
     Route: 048
     Dates: start: 20120731, end: 20120802

REACTIONS (2)
  - NAIL BED TENDERNESS [None]
  - BURNING SENSATION [None]
